FAERS Safety Report 5624251-3 (Version None)
Quarter: 2008Q1

REPORT INFORMATION
  Report Type: 
  Country: None (occurrence: None)
  Receive Date: 20080213
  Receipt Date: 20080131
  Transmission Date: 20080703
  Serious: Yes (Life-Threatening, Hospitalization, Disabling)
  Sender: FDA-Public Use
  Company Number: ZA-ELI_LILLY_AND_COMPANY-ZA200802000103

PATIENT
  Sex: Female

DRUGS (10)
  1. CAPASTAT SULFATE [Suspect]
     Indication: TUBERCULOSIS
     Dosage: 1000 MG, DAILY (1/D)
     Route: 030
     Dates: start: 20070410, end: 20071218
  2. TERIZIDONE [Concomitant]
     Indication: TUBERCULOSIS
     Dosage: 750 MG, DAILY (1/D)
     Route: 065
  3. P.A.S. [Concomitant]
     Indication: TUBERCULOSIS
     Dosage: 4 G, 2/D
     Route: 048
  4. PYRAZINAMIDE [Concomitant]
     Indication: TUBERCULOSIS
     Dosage: 1.5 G, DAILY (1/D)
     Route: 048
  5. EFAVIRENZ [Concomitant]
     Indication: HIV INFECTION
     Dosage: 600 MG, DAILY (1/D)
     Route: 048
  6. LAMIVUDINE [Concomitant]
     Indication: HIV INFECTION
     Dosage: UNK UNK, 2/D
     Route: 048
  7. ELTROXIN [Concomitant]
     Dosage: 125 UG, DAILY (1/D)
     Route: 048
  8. PYRIDOXINE [Concomitant]
     Dosage: 150 MG, DAILY (1/D)
     Route: 048
  9. DAPSONE [Concomitant]
     Dosage: 100 MG, DAILY (1/D)
     Route: 048
  10. ZIDOVUDINE [Concomitant]
     Indication: HIV INFECTION
     Dosage: 300 MG, 2/D
     Route: 065

REACTIONS (2)
  - DEHYDRATION [None]
  - RENAL FAILURE [None]
